FAERS Safety Report 8409722-9 (Version None)
Quarter: 2012Q2

REPORT INFORMATION
  Report Type: 
  Country: None (occurrence: None)
  Receive Date: 20120529
  Receipt Date: 20120521
  Transmission Date: 20120825
  Serious: Yes (Hospitalization, Other)
  Sender: FDA-Public Use
  Company Number: 2009SP017305

PATIENT
  Age: 31 Year
  Sex: Female
  Weight: 84.8226 kg

DRUGS (3)
  1. NUVARING [Suspect]
     Indication: CONTRACEPTION
     Dosage: 1 DF;
     Dates: start: 20060401, end: 20061101
  2. TOPROL-XL [Concomitant]
  3. RESTORIL [Concomitant]

REACTIONS (36)
  - THROMBOPHLEBITIS [None]
  - SOFT TISSUE INJURY [None]
  - ABDOMINAL PAIN [None]
  - PELVIC PAIN [None]
  - OVARIAN CYST [None]
  - CEREBRAL VENOUS THROMBOSIS [None]
  - WEIGHT DECREASED [None]
  - BLOOD POTASSIUM DECREASED [None]
  - COAGULATION FACTOR VIII LEVEL INCREASED [None]
  - SINUS DISORDER [None]
  - ANXIETY [None]
  - SENSATION OF PRESSURE [None]
  - HYPERTENSION [None]
  - INTRACRANIAL VENOUS SINUS THROMBOSIS [None]
  - LABILE HYPERTENSION [None]
  - URINARY TRACT INFECTION [None]
  - CHEST PAIN [None]
  - ANOVULATORY CYCLE [None]
  - NAUSEA [None]
  - SWELLING [None]
  - ABDOMINAL PAIN LOWER [None]
  - HAEMATURIA [None]
  - VITREOUS FLOATERS [None]
  - DYSFUNCTIONAL UTERINE BLEEDING [None]
  - ROAD TRAFFIC ACCIDENT [None]
  - DRUG INTOLERANCE [None]
  - HYPERCOAGULATION [None]
  - SUBARACHNOID HAEMORRHAGE [None]
  - PLATELET AGGREGATION [None]
  - BRONCHITIS [None]
  - DIARRHOEA [None]
  - INSOMNIA [None]
  - LIGAMENT SPRAIN [None]
  - DYSPNOEA [None]
  - LIPOPROTEIN (A) INCREASED [None]
  - HYPERSENSITIVITY [None]
